FAERS Safety Report 22597464 (Version 1)
Quarter: 2023Q2

REPORT INFORMATION
  Report Type: Spontaneous
  Country: IE (occurrence: IE)
  Receive Date: 20230614
  Receipt Date: 20230614
  Transmission Date: 20230722
  Serious: Yes (Hospitalization, Other)
  Sender: FDA-Public Use
  Company Number: None

PATIENT
  Age: 61 Year
  Sex: Male

DRUGS (1)
  1. MONTELUKAST SODIUM [Suspect]
     Active Substance: MONTELUKAST SODIUM
     Indication: Asthma
     Dosage: UNK,  UNK
     Dates: start: 2002

REACTIONS (3)
  - Cerebral infarction [Unknown]
  - Eosinophilic granulomatosis with polyangiitis [Unknown]
  - Bronchopulmonary aspergillosis allergic [Unknown]
